FAERS Safety Report 8693545 (Version 4)
Quarter: 2013Q1

REPORT INFORMATION
  Report Type: Report from Study
  Country: CH (occurrence: CH)
  Receive Date: 20120730
  Receipt Date: 20130218
  Transmission Date: 20140127
  Serious: Yes (Other)
  Sender: FDA-Public Use
  Company Number: CH-GENZYME-CLOF-1002228

PATIENT
  Age: 49 None
  Sex: Male
  Weight: 55 kg

DRUGS (4)
  1. EVOLTRA [Suspect]
     Indication: ACUTE MYELOID LEUKAEMIA
     Dosage: 17 MG, QD
     Route: 042
     Dates: start: 20120613, end: 20120617
  2. CYTARABINE [Suspect]
     Indication: ACUTE MYELOID LEUKAEMIA
     Dosage: 330 MG, BID
     Route: 042
     Dates: start: 20120613, end: 20120619
  3. IDARUBICIN [Suspect]
     Indication: ACUTE MYELOID LEUKAEMIA
     Dosage: 20 MG, QD
     Route: 042
     Dates: start: 20120613, end: 20120615
  4. CEFEPIME [Concomitant]
     Indication: INFECTION
     Dosage: 2 G, UNK
     Route: 042
     Dates: start: 20120610

REACTIONS (7)
  - Lung neoplasm [Recovered/Resolved]
  - Enterocolitis [Unknown]
  - Lung infiltration [Unknown]
  - Computerised tomogram abdomen abnormal [Unknown]
  - Computerised tomogram kidney abnormal [Unknown]
  - Faecaloma [Unknown]
  - Pyrexia [Unknown]
